FAERS Safety Report 19709020 (Version 1)
Quarter: 2021Q3

REPORT INFORMATION
  Report Type: Report from Study
  Country: US (occurrence: US)
  Receive Date: 20210817
  Receipt Date: 20210817
  Transmission Date: 20211014
  Serious: Yes (Other)
  Sender: FDA-Public Use
  Company Number: US-SA-2019SA145471

PATIENT
  Age: 65 Year
  Sex: Female

DRUGS (2)
  1. SARILUMAB [Suspect]
     Active Substance: SARILUMAB
     Dosage: 200 MG, QOW
     Route: 048
     Dates: start: 20210128
  2. SARILUMAB [Suspect]
     Active Substance: SARILUMAB
     Indication: RHEUMATOID ARTHRITIS
     Dosage: 200 MG, QOW
     Route: 058
     Dates: start: 20180123

REACTIONS (4)
  - Urinary tract infection [Recovered/Resolved]
  - Incorrect route of product administration [Unknown]
  - Rheumatoid arthritis [Unknown]
  - Discomfort [Unknown]

NARRATIVE: CASE EVENT DATE: 20180123
